FAERS Safety Report 6698854-1 (Version None)
Quarter: 2010Q2

REPORT INFORMATION
  Report Type: 
  Country: None (occurrence: None)
  Receive Date: 20100427
  Receipt Date: 20100423
  Transmission Date: 20101027
  Serious: Yes (Death, Other)
  Sender: FDA-Public Use
  Company Number: PHHY2010GB07888

PATIENT
  Sex: Female

DRUGS (5)
  1. CLOZARIL [Suspect]
     Indication: SCHIZOPHRENIA
     Dosage: UNK
     Route: 048
     Dates: start: 19990712
  2. LEVOTHYROXINE [Concomitant]
     Indication: HYPOTHYROIDISM
     Dosage: 125 UG, QD
     Route: 048
     Dates: start: 20060101
  3. PYRIDOXINE HCL [Concomitant]
     Dosage: 150 MG, QD
     Route: 048
     Dates: start: 20100208
  4. LORAZEPAM [Concomitant]
     Dosage: 3 MG, QD
     Route: 048
  5. LORAZEPAM [Concomitant]
     Dosage: 1 MG, UNK
     Dates: start: 20100210

REACTIONS (9)
  - ABDOMINAL DISTENSION [None]
  - CONTUSION [None]
  - GASTROINTESTINAL MOTILITY DISORDER [None]
  - GASTROINTESTINAL SOUNDS ABNORMAL [None]
  - INTESTINAL OBSTRUCTION [None]
  - INTESTINAL PERFORATION [None]
  - MYOCARDIAL INFARCTION [None]
  - SEPSIS [None]
  - VOMITING [None]
